FAERS Safety Report 24582350 (Version 1)
Quarter: 2024Q4

REPORT INFORMATION
  Report Type: Spontaneous
  Country: CA (occurrence: CA)
  Receive Date: 20241106
  Receipt Date: 20241106
  Transmission Date: 20250114
  Serious: Yes (Life-Threatening)
  Sender: JOHNSON AND JOHNSON
  Company Number: CA-BAYER-2024A157146

PATIENT
  Age: 41 Year
  Sex: Male
  Weight: 77.098 kg

DRUGS (1)
  1. XARELTO [Suspect]
     Active Substance: RIVAROXABAN
     Indication: Thrombosis prophylaxis
     Dosage: 20 MG, QD
     Route: 048

REACTIONS (4)
  - Drug ineffective [Recovered/Resolved]
  - Condition aggravated [Recovered/Resolved]
  - Superficial vein thrombosis [Recovered/Resolved]
  - Phlebitis [Recovered/Resolved]
